FAERS Safety Report 19888544 (Version 1)
Quarter: 2021Q3

REPORT INFORMATION
  Report Type: Spontaneous
  Country: US (occurrence: US)
  Receive Date: 20210927
  Receipt Date: 20210927
  Transmission Date: 20211014
  Serious: No
  Sender: FDA-Public Use
  Company Number: US-KVK-TECH, INC-20210600070

PATIENT
  Sex: Male

DRUGS (1)
  1. OXYCODONE HYDROCHLORIDE TABLETS, USP [Suspect]
     Active Substance: OXYCODONE HYDROCHLORIDE
     Indication: PAIN MANAGEMENT
     Dosage: UNKNOWN DOSE

REACTIONS (18)
  - Dysgeusia [Unknown]
  - Diarrhoea [Unknown]
  - Feeling jittery [Unknown]
  - Therapeutic product effect variable [Unknown]
  - Abdominal discomfort [Unknown]
  - Body temperature fluctuation [Unknown]
  - Abdominal pain upper [Unknown]
  - Feeling abnormal [Unknown]
  - Pain [Unknown]
  - Disorientation [Unknown]
  - Product physical consistency issue [Unknown]
  - Product quality issue [Unknown]
  - Vision blurred [Unknown]
  - Dizziness [Unknown]
  - Depression [Unknown]
  - Somnolence [Unknown]
  - Depressed mood [Unknown]
  - Fatigue [Unknown]

NARRATIVE: CASE EVENT DATE: 20210603
